FAERS Safety Report 5017512-2 (Version None)
Quarter: 2006Q2

REPORT INFORMATION
  Report Type: 
  Country: None (occurrence: None)
  Receive Date: 20060601
  Receipt Date: 20060601
  Transmission Date: 20061013
  Serious: Yes (Hospitalization)
  Sender: FDA-Public Use
  Company Number: None

PATIENT
  Age: 69 Year
  Sex: Male

DRUGS (6)
  1. RITUXAN [Suspect]
     Indication: MANTLE CELL LYMPHOMA
  2. THALIDOMIDE [Suspect]
     Indication: MANTLE CELL LYMPHOMA
  3. PROCARBAZINE [Suspect]
     Indication: MANTLE CELL LYMPHOMA
  4. ETOPOSIDE [Suspect]
     Indication: MANTLE CELL LYMPHOMA
  5. PREDNISONE [Suspect]
     Indication: MANTLE CELL LYMPHOMA
  6. CYCLOPHOSPHAMIDE [Suspect]
     Indication: MANTLE CELL LYMPHOMA

REACTIONS (1)
  - CORONARY ARTERY SURGERY [None]
